FAERS Safety Report 4351379-0 (Version None)
Quarter: 2004Q2

REPORT INFORMATION
  Report Type: 
  Country: None (occurrence: None)
  Receive Date: 20040503
  Receipt Date: 20031215
  Transmission Date: 20050107
  Serious: Yes (Life-Threatening, Hospitalization)
  Sender: FDA-Public Use
  Company Number: PHFR2003GB04780

PATIENT
  Age: 63 Year
  Sex: Male

DRUGS (5)
  1. TEGRETOL [Suspect]
     Dosage: 200 MG, BID
     Route: 048
     Dates: start: 20030601
  2. SILDENAFIL [Concomitant]
     Dosage: 100 MG, PRN
     Route: 048
     Dates: start: 20021104
  3. SELENIUM TRACE METAL ADDITIVE [Concomitant]
     Dosage: 1 UNK, QD
     Route: 048
  4. OMEPRAZOLE [Concomitant]
     Dosage: 20 MG, PRN
     Route: 048
  5. COENZYME Q10 [Concomitant]
     Dosage: 30 MG, QD

REACTIONS (2)
  - MEDICATION ERROR [None]
  - PULMONARY EMBOLISM [None]
